FAERS Safety Report 25118165 (Version 8)
Quarter: 2025Q4

REPORT INFORMATION
  Report Type: Spontaneous
  Country: US (occurrence: US)
  Receive Date: 20250325
  Receipt Date: 20251201
  Transmission Date: 20260117
  Serious: Yes (Other)
  Sender: ABBVIE
  Company Number: US-ABBVIE-6177815

PATIENT
  Age: 82 Year
  Sex: Female
  Weight: 54 kg

DRUGS (3)
  1. REFRESH OPTIVE GEL DROPS [Suspect]
     Active Substance: CARBOXYMETHYLCELLULOSE SODIUM\GLYCERIN
     Indication: Dry eye
     Dosage: GEL DROPS
     Route: 047
     Dates: start: 20250110, end: 20250112
  2. MURO 128 [Concomitant]
     Active Substance: SODIUM CHLORIDE
     Indication: Corneal dystrophy
     Route: 065
  3. REFRESH CLASSIC [Suspect]
     Active Substance: POLYVINYL ALCOHOL\POVIDONE
     Indication: Product used for unknown indication
     Dosage: LAST ADMIN DATE WAS 2025
     Route: 047
     Dates: start: 20250110

REACTIONS (10)
  - Corneal scar [Not Recovered/Not Resolved]
  - Eye infection [Recovered/Resolved]
  - Eye irritation [Recovered/Resolved]
  - Visual impairment [Not Recovered/Not Resolved]
  - Altered visual depth perception [Not Recovered/Not Resolved]
  - Eye pain [Recovered/Resolved]
  - Ulcerative keratitis [Recovering/Resolving]
  - Ocular hyperaemia [Recovered/Resolved]
  - Hypertension [Unknown]
  - Product container issue [Unknown]

NARRATIVE: CASE EVENT DATE: 20250101
